FAERS Safety Report 6825060-X (Version None)
Quarter: 2010Q3

REPORT INFORMATION
  Report Type: 
  Country: None (occurrence: None)
  Receive Date: 20100708
  Receipt Date: 20061226
  Transmission Date: 20110219
  Serious: No
  Sender: FDA-Public Use
  Company Number: US-PFIZER INC-2007001049

PATIENT
  Sex: Male

DRUGS (8)
  1. CHANTIX [Suspect]
     Indication: SMOKING CESSATION THERAPY
     Dates: start: 20061216
  2. ALBUTEROL [Concomitant]
  3. SIMVASTATIN [Concomitant]
  4. FELODIPINE [Concomitant]
     Indication: HYPERTENSION
  5. ALL OTHER THERAPEUTIC PRODUCTS [Concomitant]
  6. ACETYLSALICYLIC ACID [Concomitant]
  7. CLOPIDOGREL [Concomitant]
  8. OXYGEN [Concomitant]

REACTIONS (1)
  - DIZZINESS [None]
